FAERS Safety Report 9337144 (Version 3)
Quarter: 2013Q3

REPORT INFORMATION
  Report Type: Report from Study
  Country: US (occurrence: US)
  Receive Date: 20130607
  Receipt Date: 20130809
  Transmission Date: 20140515
  Serious: Yes (Other)
  Sender: FDA-Public Use
  Company Number: US-JNJFOC-20130601558

PATIENT
  Age: 79 Year
  Sex: Male

DRUGS (27)
  1. ABIRATERONE ACETATE [Suspect]
     Route: 048
  2. ABIRATERONE ACETATE [Suspect]
     Indication: PROSTATE CANCER METASTATIC
     Route: 048
     Dates: start: 20121213
  3. PREDNISONE [Suspect]
     Indication: PROSTATE CANCER METASTATIC
     Route: 048
     Dates: start: 20121213
  4. VENLAFAXINE HYDROCHLORIDE [Concomitant]
     Indication: HOT FLUSH
     Route: 048
     Dates: start: 20090719, end: 20091116
  5. LUPRON [Concomitant]
     Indication: HORMONE THERAPY
     Route: 030
     Dates: start: 20060719
  6. LUPRON [Concomitant]
     Indication: HORMONE THERAPY
     Route: 030
     Dates: start: 20090729
  7. GLUCOSAMINE / CHONDROITIN [Concomitant]
     Indication: NUTRITIONAL SUPPLEMENTATION
     Route: 048
     Dates: start: 200702
  8. MODAFINIL [Concomitant]
     Indication: FATIGUE
     Route: 048
     Dates: start: 20070718
  9. TRAVOPROST [Concomitant]
     Indication: PROPHYLAXIS
     Route: 047
     Dates: start: 20071215
  10. CALCIUM CARBONATE [Concomitant]
     Indication: MEDICAL DIET
     Route: 048
     Dates: start: 20060706
  11. SIMVASTATIN [Concomitant]
     Indication: HYPERCHOLESTEROLAEMIA
     Route: 048
     Dates: start: 20090715
  12. LORATADINE [Concomitant]
     Indication: ALLERGY PROPHYLAXIS
     Route: 048
     Dates: start: 20090715
  13. METOPROLOL [Concomitant]
     Indication: ATRIAL FIBRILLATION
     Route: 048
     Dates: start: 20090813
  14. METOPROLOL [Concomitant]
     Indication: ATRIAL FIBRILLATION
     Route: 048
     Dates: start: 20090813
  15. CLOPIDOGREL [Concomitant]
     Indication: ATRIAL FIBRILLATION
     Route: 048
     Dates: start: 20090814
  16. LOTRIMIN [Concomitant]
     Indication: FUNGAL INFECTION
     Route: 061
     Dates: start: 20091012
  17. TYLENOL [Concomitant]
     Indication: ARTHRALGIA
     Route: 048
     Dates: start: 20091221
  18. MULTIVITAMINS [Concomitant]
     Indication: MEDICAL DIET
     Route: 048
     Dates: start: 20060706
  19. DIOVAN [Concomitant]
     Indication: BLOOD PRESSURE
     Route: 048
     Dates: start: 20110208
  20. DENOSUMAB [Concomitant]
     Indication: PROPHYLAXIS
     Route: 058
     Dates: start: 20110208
  21. VICODIN [Concomitant]
     Indication: BACK PAIN
     Dosage: EVERY 4-6 HOURS AS NECESSARY
     Route: 048
     Dates: start: 20110404
  22. VICODIN [Concomitant]
     Indication: BACK PAIN
     Route: 048
     Dates: start: 20100517, end: 20110404
  23. EFFEXOR [Concomitant]
     Indication: HOT FLUSH
     Route: 048
     Dates: start: 20091116
  24. LIDODERM [Concomitant]
     Indication: BACK PAIN
     Route: 062
     Dates: start: 20130217
  25. SENNA [Concomitant]
     Indication: CONSTIPATION
     Route: 048
     Dates: start: 20130307
  26. DOCUSATE [Concomitant]
     Indication: CONSTIPATION
     Route: 048
     Dates: start: 20130307
  27. MS CONTIN [Concomitant]
     Indication: BACK PAIN
     Route: 048
     Dates: start: 20130404

REACTIONS (1)
  - Lymphopenia [Recovering/Resolving]
